FAERS Safety Report 6882155-2 (Version None)
Quarter: 2010Q3

REPORT INFORMATION
  Report Type: 
  Country: None (occurrence: None)
  Receive Date: 20100727
  Receipt Date: 20100720
  Transmission Date: 20110219
  Serious: Yes (Death, Hospitalization)
  Sender: FDA-Public Use
  Company Number: 2010US002848

PATIENT
  Age: 58 Year
  Sex: Male

DRUGS (15)
  1. PROGRAF [Suspect]
     Indication: RENAL TRANSPLANT
     Dosage: 3 MG, BID, ORAL
     Route: 048
     Dates: end: 20100115
  2. RAPAMUNE [Concomitant]
  3. PREDNISONE [Concomitant]
  4. MYCOPHENOLIC ACID [Concomitant]
  5. KETOCONAZOLE [Concomitant]
  6. BACTRIM [Concomitant]
  7. PROTONIX [Concomitant]
  8. ASPIRIN [Concomitant]
  9. NORVASC [Concomitant]
  10. LOPRESSOR [Concomitant]
  11. LASIX [Concomitant]
  12. MAGNESIUM OXIDE (MAGNESIUEM OXIDE) [Concomitant]
  13. POTASSIUM (POTASSIUM) [Concomitant]
  14. INSULIN NPH (INSULIN ISOPHANE BOVINE) [Concomitant]
  15. NOVOLOG [Concomitant]

REACTIONS (3)
  - CARDIO-RESPIRATORY ARREST [None]
  - FLUID OVERLOAD [None]
  - HYPERTENSION [None]
